FAERS Safety Report 9056461 (Version 4)
Quarter: 2013Q2

REPORT INFORMATION
  Report Type: Spontaneous
  Country: JP (occurrence: JP)
  Receive Date: 20130204
  Receipt Date: 20130520
  Transmission Date: 20140414
  Serious: Yes (Hospitalization)
  Sender: FDA-Public Use
  Company Number: JP-VERTEX PHARMACEUTICALS INC.-2013-001446

PATIENT
  Age: 71 Year
  Sex: Male

DRUGS (9)
  1. TELAVIC [Suspect]
     Indication: CHRONIC HEPATITIS C
     Dosage: 2250 MG, QD
     Route: 048
     Dates: start: 20130123, end: 20130125
  2. REBETOL [Concomitant]
     Dosage: 600 MG, QD
     Route: 048
     Dates: start: 20130123, end: 20130125
  3. PEGINTRON [Concomitant]
     Dosage: 1.5 ?G/KG, QW
     Route: 058
     Dates: start: 20130123, end: 20130125
  4. GLYCYRON [Concomitant]
     Dosage: 150 MG, QD
     Route: 048
  5. ADALAT CR [Concomitant]
     Dosage: 40 MG, QD
     Route: 048
  6. AMARYL [Concomitant]
     Dosage: 2 MG, QD
     Route: 048
  7. ARTIST [Concomitant]
     Dosage: 5 MG, QD
     Route: 048
  8. DIOVAN [Concomitant]
     Dosage: 80 MG, QD
     Route: 048
  9. URSO [Concomitant]
     Dosage: 600 MG, QD
     Route: 048

REACTIONS (1)
  - Renal impairment [Recovered/Resolved]
